FAERS Safety Report 9704458 (Version 1)
Quarter: 2013Q4

REPORT INFORMATION
  Report Type: Spontaneous
  Country: US (occurrence: US)
  Receive Date: 20131122
  Receipt Date: 20131122
  Transmission Date: 20140711
  Serious: No
  Sender: FDA-Public Use
  Company Number: US-BAYER-2013-143109

PATIENT
  Age: 37 Year
  Sex: Male
  Weight: 102 kg

DRUGS (2)
  1. ALEVE TABLET [Suspect]
     Indication: TOOTHACHE
     Dosage: DF
     Route: 048
  2. ALEVE TABLET [Suspect]
     Indication: TOOTHACHE
     Dosage: 8 DF, ONCE
     Route: 048
     Dates: start: 20131120, end: 20131120

REACTIONS (2)
  - Extra dose administered [None]
  - Expired drug administered [None]
